FAERS Safety Report 5119999-3 (Version None)
Quarter: 2006Q4

REPORT INFORMATION
  Report Type: 
  Country: None (occurrence: None)
  Receive Date: 20061003
  Receipt Date: 20060927
  Transmission Date: 20070319
  Serious: Yes (Hospitalization)
  Sender: FDA-Public Use
  Company Number: DE-BRISTOL-MYERS SQUIBB COMPANY-13523428

PATIENT
  Age: 41 Year
  Sex: Female
  Weight: 69 kg

DRUGS (4)
  1. CYCLOPHOSPHAMIDE [Suspect]
     Indication: BREAST CANCER
     Route: 042
     Dates: start: 20060720, end: 20060831
  2. EPIRUBICIN [Suspect]
     Indication: BREAST CANCER
     Route: 042
     Dates: start: 20060720, end: 20060831
  3. NEULASTA [Concomitant]
     Route: 058
     Dates: start: 20060721, end: 20060907
  4. EPOETIN BETA [Concomitant]
     Route: 058
     Dates: start: 20060720

REACTIONS (1)
  - SINUS TACHYCARDIA [None]
